FAERS Safety Report 22669328 (Version 3)
Quarter: 2024Q1

REPORT INFORMATION
  Report Type: Spontaneous
  Country: IN (occurrence: IN)
  Receive Date: 20230704
  Receipt Date: 20240116
  Transmission Date: 20240410
  Serious: Yes (Other)
  Sender: FDA-Public Use
  Company Number: IN-PFIZER INC-PV202300113761

PATIENT
  Age: 54 Year
  Sex: Female
  Weight: 58.9 kg

DRUGS (2)
  1. DACOMITINIB [Suspect]
     Active Substance: DACOMITINIB
     Dosage: 30 MG, 1X/DAY
     Route: 048
     Dates: start: 20230324
  2. MEGEETRON [Concomitant]
     Dosage: 160 MG, 2X/DAY

REACTIONS (5)
  - Carcinoembryonic antigen increased [Unknown]
  - Second primary malignancy [Unknown]
  - Hepatic neoplasm [Unknown]
  - Rash [Unknown]
  - Weight decreased [Unknown]

NARRATIVE: CASE EVENT DATE: 20230420
